FAERS Safety Report 19419887 (Version 1)
Quarter: 2021Q2

REPORT INFORMATION
  Report Type: Spontaneous
  Country: US (occurrence: US)
  Receive Date: 20210616
  Receipt Date: 20210616
  Transmission Date: 20210717
  Serious: Yes (Death)
  Sender: FDA-Public Use
  Company Number: US-BEH-2021132778

PATIENT
  Age: 2 Year
  Sex: Female

DRUGS (1)
  1. HIZENTRA [Suspect]
     Active Substance: HUMAN IMMUNOGLOBULIN G
     Indication: HYPOGAMMAGLOBULINAEMIA
     Dosage: 2 GRAM, QOW
     Route: 058
     Dates: start: 20200310, end: 20210524

REACTIONS (1)
  - Death [Fatal]

NARRATIVE: CASE EVENT DATE: 20210524
